FAERS Safety Report 11318476 (Version 1)
Quarter: 2015Q3

REPORT INFORMATION
  Report Type: Not Available
  Country: DE (occurrence: DE)
  Receive Date: 20150729
  Receipt Date: 20150729
  Transmission Date: 20151125
  Serious: No
  Sender: FDA-Public Use
  Company Number: DE-LUPIN PHARMACEUTICALS INC.-2015-01636

PATIENT
  Age: 67 Year
  Sex: Female

DRUGS (2)
  1. LEVETIRACETAM-HORMOSAN 500 MG FILMTABLETTEN [Suspect]
     Active Substance: LEVETIRACETAM
     Indication: PRODUCT USED FOR UNKNOWN INDICATION
     Route: 065
  2. INSULIN [Concomitant]
     Active Substance: INSULIN NOS
     Indication: PRODUCT USED FOR UNKNOWN INDICATION
     Route: 065

REACTIONS (1)
  - Blood glucose increased [Not Recovered/Not Resolved]
